FAERS Safety Report 20928463 (Version 2)
Quarter: 2022Q2

REPORT INFORMATION
  Report Type: Report from Study
  Country: FR (occurrence: FR)
  Receive Date: 20220607
  Receipt Date: 20220613
  Transmission Date: 20220720
  Serious: No
  Sender: FDA-Public Use
  Company Number: FR-GILEAD-2022-0577876

PATIENT
  Sex: Female
  Weight: 70 kg

DRUGS (2)
  1. SACITUZUMAB GOVITECAN [Suspect]
     Active Substance: SACITUZUMAB GOVITECAN
     Indication: Triple negative breast cancer
     Dosage: 10 MG/KG, C1D1
     Route: 042
     Dates: start: 20220217
  2. SACITUZUMAB GOVITECAN [Suspect]
     Active Substance: SACITUZUMAB GOVITECAN
     Dosage: 10 MG/KG, C2D1 TO C2D8
     Route: 042
     Dates: start: 20220310, end: 20220512

REACTIONS (1)
  - Therapy interrupted [Recovered/Resolved]
